FAERS Safety Report 11495693 (Version 1)
Quarter: 2015Q3

REPORT INFORMATION
  Report Type: Report from Study
  Country: US (occurrence: US)
  Receive Date: 20150911
  Receipt Date: 20150911
  Transmission Date: 20151125
  Serious: No
  Sender: FDA-Public Use
  Company Number: US-ROCHE-GNE285583

PATIENT
  Sex: Male

DRUGS (3)
  1. RAPTIVA [Suspect]
     Active Substance: EFALIZUMAB
     Indication: PSORIASIS
     Dosage: CONDITIONING DOSE
     Route: 065
  2. RAPTIVA [Suspect]
     Active Substance: EFALIZUMAB
     Route: 065
  3. RAPTIVA [Suspect]
     Active Substance: EFALIZUMAB
     Indication: PUSTULAR PSORIASIS
     Route: 065

REACTIONS (2)
  - Vision blurred [Unknown]
  - Headache [Unknown]
